FAERS Safety Report 7935156-7 (Version None)
Quarter: 2011Q4

REPORT INFORMATION
  Report Type: 
  Country: None (occurrence: None)
  Receive Date: 20111117
  Receipt Date: 20111104
  Transmission Date: 20120403
  Serious: Yes (Death, Hospitalization, Other)
  Sender: FDA-Public Use
  Company Number: 2011MA016054

PATIENT
  Age: 57 Year
  Sex: Male
  Weight: 68.9467 kg

DRUGS (1)
  1. DIGOXIN [Suspect]
     Indication: CARDIAC FAILURE CONGESTIVE
     Dosage: 0.25 MG;QD;PO
     Route: 048
     Dates: start: 20070912, end: 20080511

REACTIONS (19)
  - EMOTIONAL DISORDER [None]
  - ELECTROCARDIOGRAM CHANGE [None]
  - HYPONATRAEMIA [None]
  - ISCHAEMIC CARDIOMYOPATHY [None]
  - ECONOMIC PROBLEM [None]
  - MENTAL DISORDER [None]
  - CORONARY ARTERY DISEASE [None]
  - DEHYDRATION [None]
  - HYPOVOLAEMIA [None]
  - TOXICITY TO VARIOUS AGENTS [None]
  - MULTIPLE INJURIES [None]
  - UNEVALUABLE EVENT [None]
  - RENAL FAILURE ACUTE [None]
  - VISUAL IMPAIRMENT [None]
  - PAIN [None]
  - NAUSEA [None]
  - VOMITING [None]
  - WEIGHT DECREASED [None]
  - CARDIOACTIVE DRUG LEVEL ABOVE THERAPEUTIC [None]
